FAERS Safety Report 6500039-6 (Version None)
Quarter: 2009Q4

REPORT INFORMATION
  Report Type: 
  Country: None (occurrence: None)
  Receive Date: 20091216
  Receipt Date: 20091204
  Transmission Date: 20100525
  Serious: Yes (Other)
  Sender: FDA-Public Use
  Company Number: BE-WYE-H11603409

PATIENT
  Sex: Female
  Weight: 83 kg

DRUGS (2)
  1. PANTOMED [Suspect]
     Indication: HIATUS HERNIA
     Route: 048
     Dates: start: 20090919, end: 20091009
  2. EMCONCOR [Concomitant]
     Indication: HYPERTENSION
     Dosage: UNKNOWN
     Route: 048

REACTIONS (13)
  - ACTIVITIES OF DAILY LIVING IMPAIRED [None]
  - COUGH [None]
  - DEPRESSION [None]
  - DYSPEPSIA [None]
  - DYSPHAGIA [None]
  - ERYTHEMA [None]
  - HEART RATE INCREASED [None]
  - HOT FLUSH [None]
  - HYPERAESTHESIA [None]
  - HYPERCHLORHYDRIA [None]
  - LIP BLISTER [None]
  - MALAISE [None]
  - REGURGITATION [None]
